FAERS Safety Report 19886189 (Version 1)
Quarter: 2021Q3

REPORT INFORMATION
  Report Type: Report from Study
  Country: None (occurrence: NL)
  Receive Date: 20210928
  Receipt Date: 20210928
  Transmission Date: 20211014
  Serious: Yes (Other)
  Sender: FDA-Public Use
  Company Number: NL-ABBVIE-21K-114-4086181-00

PATIENT
  Sex: Male

DRUGS (4)
  1. MADOPAR DISPERSIBL [Concomitant]
     Active Substance: BENSERAZIDE HYDROCHLORIDE\LEVODOPA
     Indication: PARKINSON^S DISEASE
  2. DUODOPA [Suspect]
     Active Substance: CARBIDOPA\LEVODOPA
     Indication: PARKINSON^S DISEASE
     Route: 050
     Dates: start: 20180205
  3. DUODOPA [Suspect]
     Active Substance: CARBIDOPA\LEVODOPA
     Dosage: MD: 12.0ML, CD: 3.9 ML/H, ED: 3.3ML
     Route: 050
  4. DUODOPA [Suspect]
     Active Substance: CARBIDOPA\LEVODOPA
     Dosage: MD: 12.0ML, CD: 3.7 ML/H, ED: 3.3ML
     Route: 050

REACTIONS (12)
  - Nightmare [Not Recovered/Not Resolved]
  - Post procedural complication [Not Recovered/Not Resolved]
  - Malaise [Unknown]
  - Discomfort [Unknown]
  - Stoma site reaction [Not Recovered/Not Resolved]
  - Dyskinesia [Not Recovered/Not Resolved]
  - Somnolence [Unknown]
  - On and off phenomenon [Unknown]
  - Ankle operation [Recovered/Resolved]
  - Medical device discomfort [Unknown]
  - Restlessness [Not Recovered/Not Resolved]
  - Agitation [Unknown]

NARRATIVE: CASE EVENT DATE: 2021
